FAERS Safety Report 21926866 (Version 6)
Quarter: 2024Q1

REPORT INFORMATION
  Report Type: Spontaneous
  Country: US (occurrence: US)
  Receive Date: 20230130
  Receipt Date: 20240131
  Transmission Date: 20240409
  Serious: No
  Sender: FDA-Public Use
  Company Number: US-PFIZER INC-PV202300015415

PATIENT
  Age: 62 Year
  Sex: Female

DRUGS (3)
  1. IBRANCE [Suspect]
     Active Substance: PALBOCICLIB
     Dosage: UNK, CYCLIC (WITH 7 DAYS OFF)
  2. FEMARA [Suspect]
     Active Substance: LETROZOLE
     Dosage: UNK
  3. CALCIUM\VITAMIN D [Concomitant]
     Active Substance: CALCIUM\VITAMIN D

REACTIONS (10)
  - Fatigue [Recovered/Resolved]
  - Weight increased [Unknown]
  - Emotional disorder [Unknown]
  - Mental disorder [Unknown]
  - Depression [Unknown]
  - Alopecia [Unknown]
  - Onychoclasis [Unknown]
  - Eye disorder [Unknown]
  - Arthralgia [Unknown]
  - Product dose omission issue [Unknown]
